FAERS Safety Report 7690516-7 (Version None)
Quarter: 2011Q3

REPORT INFORMATION
  Report Type: 
  Country: None (occurrence: None)
  Receive Date: 20110818
  Receipt Date: 20110816
  Transmission Date: 20111222
  Serious: Yes (Hospitalization)
  Sender: FDA-Public Use
  Company Number: DE-PFIZER INC-2006057955

PATIENT
  Age: 69 Year
  Sex: Male
  Weight: 102 kg

DRUGS (8)
  1. BISOPROLOL [Concomitant]
     Route: 048
     Dates: start: 19990401, end: 20060301
  2. CHININ [Concomitant]
     Route: 048
     Dates: start: 20060101
  3. FUROSEMIDE [Concomitant]
     Route: 048
     Dates: start: 20060201
  4. LEVOTHYROXINE [Concomitant]
     Route: 048
     Dates: start: 20000301
  5. SODIUM HYDROGEN CARBONATE [Concomitant]
     Route: 048
     Dates: start: 20060201
  6. PHENPROCOUMON [Concomitant]
     Route: 048
     Dates: start: 20051201
  7. SUNITINIB MALATE [Suspect]
     Indication: METASTATIC RENAL CELL CARCINOMA
     Dosage: 50 MG, 1X/DAY
     Route: 048
     Dates: start: 20060331
  8. AMLODIPINE [Concomitant]
     Route: 048
     Dates: start: 20060301

REACTIONS (1)
  - BUNDLE BRANCH BLOCK RIGHT [None]
